FAERS Safety Report 7408280-5 (Version None)
Quarter: 2011Q2

REPORT INFORMATION
  Report Type: 
  Country: None (occurrence: None)
  Receive Date: 20110412
  Receipt Date: 20110405
  Transmission Date: 20111010
  Serious: Yes (Hospitalization)
  Sender: FDA-Public Use
  Company Number: US-SANOFI-AVENTIS-2011SA021449

PATIENT
  Age: 58 Year
  Sex: Female

DRUGS (2)
  1. LOVENOX [Suspect]
     Route: 065
     Dates: start: 20100101, end: 20100401
  2. MULTAQ [Concomitant]
     Route: 048
     Dates: start: 20100101

REACTIONS (3)
  - DEEP VEIN THROMBOSIS [None]
  - WOUND INFECTION [None]
  - SEPSIS [None]
